FAERS Safety Report 6003497-9 (Version None)
Quarter: 2008Q4

REPORT INFORMATION
  Report Type: 
  Country: None (occurrence: None)
  Receive Date: 20081212
  Receipt Date: 20081203
  Transmission Date: 20090506
  Serious: Yes (Life-Threatening)
  Sender: FDA-Public Use
  Company Number: 2008TJ0216FU2

PATIENT
  Age: 51 Year
  Sex: Male

DRUGS (3)
  1. TWINJECT 0.3 [Suspect]
     Indication: ANAPHYLACTIC REACTION
     Dosage: 0.3MG, PRN, SUBCUTANEOUS/INTRAMUSUCLAR
     Dates: start: 20080801
  2. HYZAAR [Concomitant]
  3. PREDNISONE [Concomitant]

REACTIONS (2)
  - DEVICE MALFUNCTION [None]
  - PRODUCT QUALITY ISSUE [None]
